FAERS Safety Report 20145428 (Version 1)
Quarter: 2021Q4

REPORT INFORMATION
  Report Type: Spontaneous
  Country: CA (occurrence: CA)
  Receive Date: 20211203
  Receipt Date: 20211203
  Transmission Date: 20220303
  Serious: Yes (Hospitalization, Other)
  Sender: FDA-Public Use
  Company Number: CA-TEVA-2021-CA-1983078

PATIENT
  Sex: Male
  Weight: 85 kg

DRUGS (13)
  1. CARBAMAZEPINE [Interacting]
     Active Substance: CARBAMAZEPINE
     Indication: Seizure
     Dosage: 200 MILLIGRAM DAILY;
     Route: 048
  2. QUETIAPINE FUMARATE [Interacting]
     Active Substance: QUETIAPINE FUMARATE
     Indication: Psychotic disorder
     Dosage: 700 MILLIGRAM DAILY;
     Route: 048
  3. QUETIAPINE FUMARATE [Interacting]
     Active Substance: QUETIAPINE FUMARATE
     Route: 048
  4. DIAZEPAM [Interacting]
     Active Substance: DIAZEPAM
     Indication: Seizure
     Dosage: 30 MILLIGRAM DAILY;
     Route: 065
  5. PHENYTOIN [Interacting]
     Active Substance: PHENYTOIN
     Indication: Seizure
     Dosage: 800 MILLIGRAM DAILY;
     Route: 048
  6. VALPROIC ACID [Interacting]
     Active Substance: VALPROIC ACID
     Indication: Seizure
     Dosage: 5250 MILLIGRAM DAILY;
     Route: 065
  7. VALPROIC ACID [Interacting]
     Active Substance: VALPROIC ACID
     Dosage: 1500 MILLIGRAM DAILY;
     Route: 065
  8. CLOZAPINE [Concomitant]
     Active Substance: CLOZAPINE
  9. GEMFIBROZIL [Concomitant]
     Active Substance: GEMFIBROZIL
     Dosage: 12 MILLIGRAM DAILY;
  10. OLANZAPINE [Concomitant]
     Active Substance: OLANZAPINE
     Indication: Psychotic disorder
     Dosage: 5 MILLIGRAM DAILY;
  11. OLANZAPINE [Concomitant]
     Active Substance: OLANZAPINE
     Dosage: 2.5 MILLIGRAM DAILY;
  12. PROPRANOLOL [Concomitant]
     Active Substance: PROPRANOLOL HYDROCHLORIDE
     Indication: Hypertension
     Dosage: 80 MILLIGRAM DAILY;
  13. TEMAZEPAM [Concomitant]
     Active Substance: TEMAZEPAM
     Indication: Seizure

REACTIONS (5)
  - Akathisia [Not Recovered/Not Resolved]
  - Tremor [Not Recovered/Not Resolved]
  - Drug level below therapeutic [Not Recovered/Not Resolved]
  - Drug interaction [Not Recovered/Not Resolved]
  - Drug hypersensitivity [Not Recovered/Not Resolved]
